FAERS Safety Report 4314982-X (Version None)
Quarter: 2004Q1

REPORT INFORMATION
  Report Type: 
  Country: None (occurrence: None)
  Receive Date: 20040310
  Receipt Date: 20040310
  Transmission Date: 20041129
  Serious: Yes (Other)
  Sender: FDA-Public Use
  Company Number: None

PATIENT
  Age: 22 Year
  Sex: Female
  Weight: 58.9676 kg

DRUGS (3)
  1. LEVAQUIN [Suspect]
     Indication: PELVIC INFLAMMATORY DISEASE
     Dosage: IV Q 24 /HOURS
     Route: 042
     Dates: start: 20031225, end: 20031226
  2. METRONIDAZOLE [Suspect]
     Dosage: IV-Q 8 /HOURS
     Route: 042
     Dates: start: 20031225, end: 20031226
  3. ZITHROMAX [Suspect]
     Dosage: IV Q2 HR
     Route: 042
     Dates: start: 20031225, end: 20031226

REACTIONS (1)
  - HYPERSENSITIVITY [None]
